FAERS Safety Report 9853411 (Version 2)
Quarter: 2014Q1

REPORT INFORMATION
  Report Type: Spontaneous
  Country: CA (occurrence: CA)
  Receive Date: 20140129
  Receipt Date: 20140212
  Transmission Date: 20141002
  Serious: Yes (Hospitalization, Other)
  Sender: FDA-Public Use
  Company Number: CA-009507513-1401CAN013583

PATIENT
  Age: 54 Year
  Sex: Female
  Weight: 74 kg

DRUGS (6)
  1. FOSAVANCE [Suspect]
     Indication: OSTEOPOROSIS
     Dosage: 1 DF, QW
     Route: 048
     Dates: start: 20121003
  2. ADVAIR [Concomitant]
     Route: 065
  3. EZETROL [Concomitant]
     Route: 065
  4. ESTRADOT [Concomitant]
     Route: 065
  5. PROVERA [Concomitant]
     Route: 065
  6. CALCIUM (UNSPECIFIED) [Concomitant]
     Route: 065

REACTIONS (2)
  - Mastectomy [Recovered/Resolved with Sequelae]
  - Breast cancer [Unknown]
